FAERS Safety Report 5441920-9 (Version None)
Quarter: 2007Q3

REPORT INFORMATION
  Report Type: 
  Country: None (occurrence: None)
  Receive Date: 20070830
  Receipt Date: 20070830
  Transmission Date: 20080115
  Serious: Yes (Life-Threatening, Hospitalization)
  Sender: FDA-Public Use
  Company Number: None

PATIENT
  Age: 77 Year
  Sex: Male

DRUGS (1)
  1. WARFARIN SODIUM [Suspect]
     Indication: ATRIAL FIBRILLATION
     Dosage: 2.5MG EVERY DAY PO
     Route: 048
     Dates: start: 20060502, end: 20070716

REACTIONS (6)
  - CEREBRAL HAEMORRHAGE [None]
  - DIZZINESS [None]
  - DYSSTASIA [None]
  - HYPERHIDROSIS [None]
  - NAUSEA [None]
  - VERTIGO POSITIONAL [None]
